FAERS Safety Report 8062421-8 (Version None)
Quarter: 2012Q1

REPORT INFORMATION
  Report Type: 
  Country: None (occurrence: None)
  Receive Date: 20120123
  Receipt Date: 20120111
  Transmission Date: 20120608
  Serious: Yes (Hospitalization)
  Sender: FDA-Public Use
  Company Number: US-ACTELION-A-US2012-59546

PATIENT

DRUGS (4)
  1. ADCIRCA [Concomitant]
  2. REMODULIN [Concomitant]
  3. TRACLEER [Suspect]
     Indication: PULMONARY ARTERIAL HYPERTENSION
     Dosage: UNK
     Route: 048
     Dates: start: 20110112
  4. COUMADIN [Concomitant]

REACTIONS (2)
  - OXYGEN SATURATION DECREASED [None]
  - SEPSIS [None]
